FAERS Safety Report 4555278-0 (Version None)
Quarter: 2005Q1

REPORT INFORMATION
  Report Type: 
  Country: None (occurrence: None)
  Receive Date: 20041227
  Receipt Date: 20040816
  Transmission Date: 20050727
  Serious: No
  Sender: FDA-Public Use
  Company Number: US087554

PATIENT
  Age: 72 Year
  Sex: Female

DRUGS (1)
  1. ARANESP [Suspect]
     Indication: ANAEMIA OF MALIGNANT DISEASE
     Dosage: 200 MCG
     Dates: start: 20040801

REACTIONS (3)
  - BACK PAIN [None]
  - URINARY TRACT DISORDER [None]
  - VAGINAL SWELLING [None]
